FAERS Safety Report 4688559-0 (Version None)
Quarter: 2005Q2

REPORT INFORMATION
  Report Type: 
  Country: None (occurrence: None)
  Receive Date: 20050613
  Receipt Date: 20050602
  Transmission Date: 20051028
  Serious: Yes (Death, Other)
  Sender: FDA-Public Use
  Company Number: AU-ABBOTT-05P-008-0302252-00

PATIENT
  Sex: Female

DRUGS (4)
  1. EPILIM [Suspect]
     Indication: DRUG USE FOR UNKNOWN INDICATION
     Dates: start: 19970701
  2. PROTHIADEN [Suspect]
     Indication: DRUG USE FOR UNKNOWN INDICATION
  3. FLUOXETINE HCL [Concomitant]
     Indication: DRUG USE FOR UNKNOWN INDICATION
     Route: 065
     Dates: start: 19950601
  4. TEMAZEPAM [Concomitant]
     Indication: DEPRESSION

REACTIONS (7)
  - AMNESIA [None]
  - CONFUSIONAL STATE [None]
  - DEPRESSION [None]
  - HALLUCINATION [None]
  - OVERDOSE [None]
  - SUICIDE ATTEMPT [None]
  - TREMOR [None]
